FAERS Safety Report 6085843-3 (Version None)
Quarter: 2009Q1

REPORT INFORMATION
  Report Type: 
  Country: None (occurrence: None)
  Receive Date: 20090220
  Receipt Date: 20090216
  Transmission Date: 20090719
  Serious: Yes (Other)
  Sender: FDA-Public Use
  Company Number: B0545085A

PATIENT
  Age: 2 Year
  Sex: Male
  Weight: 12.4 kg

DRUGS (11)
  1. ARRANON [Suspect]
     Dosage: 650MGM2 PER DAY
     Route: 042
     Dates: start: 20081020, end: 20081024
  2. ZYLORIC [Concomitant]
     Indication: PROPHYLAXIS
     Dosage: 99MG PER DAY
     Route: 048
     Dates: start: 20081020
  3. BAKTAR [Concomitant]
     Indication: ANTIFUNGAL PROPHYLAXIS
     Dosage: .6G PER DAY
     Route: 048
     Dates: start: 20080829
  4. HYDROCORTISONE 10MG TAB [Concomitant]
     Indication: CENTRAL NERVOUS SYSTEM NEOPLASM
     Dosage: 20MG PER DAY
     Route: 042
     Dates: start: 20081020, end: 20081020
  5. CYLOCIDE [Concomitant]
     Indication: CENTRAL NERVOUS SYSTEM NEOPLASM
     Dosage: 25MG PER DAY
     Dates: start: 20081020, end: 20081110
  6. NEO-MINOPHAGEN-C [Concomitant]
     Dosage: 20MG PER DAY
     Route: 042
     Dates: start: 20081021, end: 20081102
  7. ZOFRAN [Concomitant]
     Route: 042
     Dates: start: 20081020, end: 20081025
  8. FLUDARA [Concomitant]
     Indication: NEOPLASM MALIGNANT
     Route: 042
     Dates: start: 20081106, end: 20081110
  9. UNKNOWN DRUG [Concomitant]
     Indication: NEOPLASM MALIGNANT
     Route: 042
     Dates: start: 20081107, end: 20081109
  10. METHOTREXATE [Concomitant]
     Indication: NEOPLASM MALIGNANT
     Dates: start: 20080829, end: 20081206
  11. UNKNOWN DRUG [Concomitant]
     Route: 042
     Dates: start: 20081204, end: 20081208

REACTIONS (3)
  - ALDOLASE INCREASED [None]
  - BLOOD CREATINE PHOSPHOKINASE INCREASED [None]
  - RHABDOMYOLYSIS [None]
